FAERS Safety Report 17772272 (Version 1)
Quarter: 2020Q2

REPORT INFORMATION
  Report Type: Report from Study
  Country: US (occurrence: US)
  Receive Date: 20200512
  Receipt Date: 20200512
  Transmission Date: 20200714
  Serious: Yes (Hospitalization)
  Sender: FDA-Public Use
  Company Number: US-MYLANLABS-2020M1046800

PATIENT

DRUGS (3)
  1. GEMCITABINE. [Suspect]
     Active Substance: GEMCITABINE
     Indication: BLADDER CANCER
     Dosage: 200MG IN 10ML OF WARM WATER : SCHEDULED 6 INSTALLATIONS IN A COMBINATION WITH DOCETAXEL..
     Route: 043
  2. ACETYLSALICYLIC ACID W/CITRIC ACID//09277101/ [Concomitant]
     Indication: URINE ALKALINISATION THERAPY
     Dosage: 2 TABLETS AT NIGHT BEFORE PROCEDURE AND 2 TABLET IN MORNING OF PROCEDURE
     Route: 065
  3. DOCETAXEL. [Suspect]
     Active Substance: DOCETAXEL
     Indication: BLADDER CANCER
     Dosage: 20MG IN 10ML OF WARM WATER...
     Route: 043

REACTIONS (1)
  - Treatment failure [Unknown]
